FAERS Safety Report 19212166 (Version 1)
Quarter: 2021Q2

REPORT INFORMATION
  Report Type: Spontaneous
  Country: GB (occurrence: GB)
  Receive Date: 20210504
  Receipt Date: 20210504
  Transmission Date: 20210717
  Serious: Yes (Death, Other)
  Sender: FDA-Public Use
  Company Number: GB-AMGEN-GBRSP2021066929

PATIENT

DRUGS (4)
  1. RADIUM RA 223 DICHLORIDE [Suspect]
     Active Substance: RADIUM RA-223 DICHLORIDE
     Indication: HORMONE RECEPTOR POSITIVE HER2 NEGATIVE BREAST CANCER
     Dosage: 55 KBQ/KG, Q4WK
     Route: 042
  2. RADIUM RA 223 DICHLORIDE [Suspect]
     Active Substance: RADIUM RA-223 DICHLORIDE
     Indication: METASTASES TO BONE
  3. XGEVA [Suspect]
     Active Substance: DENOSUMAB
     Indication: METASTASES TO BONE
  4. XGEVA [Suspect]
     Active Substance: DENOSUMAB
     Indication: HORMONE RECEPTOR POSITIVE HER2 NEGATIVE BREAST CANCER
     Dosage: UNK
     Route: 065

REACTIONS (5)
  - Death [Fatal]
  - Bone pain [Unknown]
  - Spinal cord compression [Unknown]
  - Pathological fracture [Unknown]
  - Adverse event [Unknown]
